FAERS Safety Report 14924325 (Version 2)
Quarter: 2018Q2

REPORT INFORMATION
  Report Type: Spontaneous
  Country: SE (occurrence: SE)
  Receive Date: 20180522
  Receipt Date: 20180614
  Transmission Date: 20180711
  Serious: Yes (Other)
  Sender: FDA-Public Use
  Company Number: SE-VIIV HEALTHCARE LIMITED-SE2018GSK087593

PATIENT
  Age: 36 Year
  Sex: Female
  Weight: 60 kg

DRUGS (2)
  1. NIFEREX (FERROUS GLYCINE SULFATE) [Concomitant]
     Indication: IRON DEFICIENCY
     Dosage: 100 MG, UNK
     Dates: start: 20180210, end: 20180501
  2. TRIUMEQ [Suspect]
     Active Substance: ABACAVIR SULFATE\DOLUTEGRAVIR SODIUM\LAMIVUDINE
     Indication: HIV INFECTION
     Dosage: 1 DF, QD
     Dates: start: 20170816, end: 20180327

REACTIONS (7)
  - Syncope [Recovered/Resolved]
  - Type 2 diabetes mellitus [Recovered/Resolved]
  - Dizziness [Recovered/Resolved]
  - Nausea [Recovered/Resolved]
  - Fall [Unknown]
  - Hyperglycaemia [Unknown]
  - Iron deficiency [Unknown]

NARRATIVE: CASE EVENT DATE: 20170816
